FAERS Safety Report 4386925-4 (Version None)
Quarter: 2004Q2

REPORT INFORMATION
  Report Type: 
  Country: None (occurrence: None)
  Receive Date: 20040629
  Receipt Date: 20040629
  Transmission Date: 20050107
  Serious: Yes (Other)
  Sender: FDA-Public Use
  Company Number: None

PATIENT
  Sex: Female
  Weight: 16.3295 kg

DRUGS (2)
  1. SINGULAIR [Suspect]
     Indication: URTICARIA
     Dosage: 5 MG PO QPM
  2. ZYRTEC [Concomitant]

REACTIONS (1)
  - HALLUCINATION [None]
